FAERS Safety Report 24328334 (Version 1)
Quarter: 2024Q3

REPORT INFORMATION
  Report Type: Spontaneous
  Country: FR (occurrence: FR)
  Receive Date: 20240917
  Receipt Date: 20240917
  Transmission Date: 20241016
  Serious: Yes (Other)
  Sender: MYLAN
  Company Number: FR-MYLANLABS-2024M1083626

PATIENT
  Age: 59 Year
  Sex: Female

DRUGS (1)
  1. PAROXETINE [Suspect]
     Active Substance: PAROXETINE
     Indication: Product used for unknown indication
     Dosage: UNK UNK, PM (HALF A TABLET PER DAY AT 06:00 PM)
     Route: 065
     Dates: start: 20240909, end: 20240910

REACTIONS (13)
  - Angina pectoris [Unknown]
  - Headache [Unknown]
  - Hyperhidrosis [Unknown]
  - Dizziness [Unknown]
  - Initial insomnia [Unknown]
  - Nausea [Unknown]
  - Myalgia [Unknown]
  - Asthenia [Unknown]
  - Arthralgia [Unknown]
  - Dysuria [Recovering/Resolving]
  - Pain [Unknown]
  - Dyspnoea [Unknown]
  - Feeling cold [Unknown]

NARRATIVE: CASE EVENT DATE: 20240901
